FAERS Safety Report 19817798 (Version 1)
Quarter: 2021Q3

REPORT INFORMATION
  Report Type: Spontaneous
  Country: IT (occurrence: IT)
  Receive Date: 20210911
  Receipt Date: 20210911
  Transmission Date: 20211014
  Serious: Yes (Other)
  Sender: FDA-Public Use
  Company Number: IT-CELLTRION INC.-2021IT012168

PATIENT

DRUGS (8)
  1. ACITRETIN. [Concomitant]
     Active Substance: ACITRETIN
  2. ADALIMUMAB [Concomitant]
     Active Substance: ADALIMUMAB
  3. IXEKIZUMAB [Concomitant]
     Active Substance: IXEKIZUMAB
  4. PREDNISOLONE. [Concomitant]
     Active Substance: PREDNISOLONE
  5. GUSELKUMAB [Concomitant]
     Active Substance: GUSELKUMAB
  6. CYCLOSPORINE. [Concomitant]
     Active Substance: CYCLOSPORINE
  7. METHOTREXATE. [Concomitant]
     Active Substance: METHOTREXATE
  8. RITUXIMAB. [Suspect]
     Active Substance: RITUXIMAB
     Indication: CASTLEMAN^S DISEASE
     Dosage: 375 MG/M2 EVERY 2 WEEKS, FOUR DOSES
     Route: 042

REACTIONS (2)
  - Off label use [Unknown]
  - Staphylococcal sepsis [Unknown]
